FAERS Safety Report 6896812-5 (Version None)
Quarter: 2010Q3

REPORT INFORMATION
  Report Type: 
  Country: None (occurrence: None)
  Receive Date: 20100802
  Receipt Date: 20100723
  Transmission Date: 20110219
  Serious: Yes (Disabling, Other)
  Sender: FDA-Public Use
  Company Number: FR-GILEAD-2010-0030163

PATIENT
  Sex: Female
  Weight: 56 kg

DRUGS (1)
  1. ATRIPLA [Suspect]
     Indication: HIV INFECTION
     Dates: start: 20090704, end: 20100503

REACTIONS (2)
  - AGORAPHOBIA [None]
  - DEPRESSION [None]
